FAERS Safety Report 7738240-6 (Version None)
Quarter: 2011Q3

REPORT INFORMATION
  Report Type: 
  Country: None (occurrence: None)
  Receive Date: 20110908
  Receipt Date: 20110830
  Transmission Date: 20111222
  Serious: Yes (Other)
  Sender: FDA-Public Use
  Company Number: BR-ASTRAZENECA-2011SE52460

PATIENT
  Age: 66 Year
  Sex: Female
  Weight: 98 kg

DRUGS (1)
  1. ATACAND HCT [Suspect]
     Indication: HYPERTENSION
     Dosage: 16/12.5 MG DAILY
     Route: 048
     Dates: start: 20080101, end: 20110801

REACTIONS (5)
  - BLOOD PRESSURE INADEQUATELY CONTROLLED [None]
  - DERMAL CYST [None]
  - DRUG INEFFECTIVE [None]
  - FEELING HOT [None]
  - PERIPHERAL COLDNESS [None]
